FAERS Safety Report 21458482 (Version 5)
Quarter: 2023Q1

REPORT INFORMATION
  Report Type: Spontaneous
  Country: IN (occurrence: IN)
  Receive Date: 20221014
  Receipt Date: 20230306
  Transmission Date: 20230417
  Serious: Yes (Other)
  Sender: FDA-Public Use
  Company Number: IN-PFIZER INC-PV202200082065

PATIENT
  Age: 78 Year
  Sex: Female

DRUGS (5)
  1. PALBOCICLIB [Suspect]
     Active Substance: PALBOCICLIB
     Dosage: 125 MG, CYCLIC (ONCE A DAY X 21 DAYS ONE WEEK GAP)
     Route: 048
     Dates: start: 20211225
  2. PALBOCICLIB [Suspect]
     Active Substance: PALBOCICLIB
     Dosage: 100 MG, CYCLIC(ONCE A DAY, FOR 21 DAYS ON, 7 DAYS OFF)
  3. FEMARA [Concomitant]
     Active Substance: LETROZOLE
     Dosage: 1 DF, 1X/DAY (1 TABLET(S), MORNING)
     Route: 048
     Dates: start: 20211225
  4. FEMARA [Concomitant]
     Active Substance: LETROZOLE
     Dosage: 2.5 MG, 1X/DAY
  5. SHELCAL [CALCIUM CARBONATE;COLECALCIFEROL] [Concomitant]
     Dosage: 500 MG, 2X/DAY (1 TABLET(S), MORING + NIGHT)
     Dates: start: 20211225

REACTIONS (10)
  - Blood pressure increased [Unknown]
  - Blood glucose increased [Unknown]
  - Alopecia [Unknown]
  - Heart rate increased [Unknown]
  - Respiratory rate increased [Unknown]
  - White blood cell count decreased [Unknown]
  - Haemoglobin decreased [Unknown]
  - Pain in extremity [Unknown]
  - Neutrophil count decreased [Unknown]
  - Product prescribing error [Unknown]

NARRATIVE: CASE EVENT DATE: 20220202
